FAERS Safety Report 18992251 (Version 1)
Quarter: 2021Q1

REPORT INFORMATION
  Report Type: Spontaneous
  Country: US (occurrence: US)
  Receive Date: 20210310
  Receipt Date: 20210310
  Transmission Date: 20210420
  Serious: Yes (Disabling)
  Sender: FDA-Public Use
  Company Number: None

PATIENT
  Age: 64 Year
  Sex: Female
  Weight: 67.5 kg

DRUGS (3)
  1. CITRATE [Concomitant]
     Active Substance: CITRIC ACID MONOHYDRATE
  2. VITAMIN D3 [Concomitant]
     Active Substance: CHOLECALCIFEROL
  3. ALENDRONATE SODIUM TABLETS, 70 MG [Suspect]
     Active Substance: ALENDRONATE SODIUM
     Indication: OSTEOPOROSIS
     Route: 048
     Dates: start: 20200311, end: 20200311

REACTIONS (17)
  - Myalgia [None]
  - Oropharyngeal pain [None]
  - Dysphonia [None]
  - Pyrexia [None]
  - Scar [None]
  - Bone pain [None]
  - Oesophagitis [None]
  - Barrett^s oesophagus [None]
  - Chills [None]
  - Regurgitation [None]
  - Gastrooesophageal reflux disease [None]
  - Nausea [None]
  - Decreased appetite [None]
  - Hypersensitivity [None]
  - Paraesthesia [None]
  - Fatigue [None]
  - Blister [None]

NARRATIVE: CASE EVENT DATE: 20200311
